FAERS Safety Report 12430363 (Version 1)
Quarter: 2016Q2

REPORT INFORMATION
  Report Type: Spontaneous
  Country: DE (occurrence: DE)
  Receive Date: 20160602
  Receipt Date: 20160602
  Transmission Date: 20160815
  Serious: Yes (Hospitalization)
  Sender: FDA-Public Use
  Company Number: DE-ELI_LILLY_AND_COMPANY-DE201605009895

PATIENT
  Age: 19 Year
  Sex: Male

DRUGS (15)
  1. ZYPREXA [Suspect]
     Active Substance: OLANZAPINE
     Indication: PRODUCT USED FOR UNKNOWN INDICATION
     Dosage: 15 MG, QD
     Route: 048
     Dates: start: 20151008, end: 20151015
  2. RISPERDAL [Suspect]
     Active Substance: RISPERIDONE
     Dosage: 2 MG, UNKNOWN
     Route: 048
     Dates: start: 20151204, end: 20151205
  3. TAVOR (LORAZEPAM) [Concomitant]
     Active Substance: LORAZEPAM
     Dosage: 1.5 MG, UNKNOWN
     Route: 048
     Dates: start: 20151110, end: 20151130
  4. RISPERDAL [Suspect]
     Active Substance: RISPERIDONE
     Dosage: 4 MG, UNKNOWN
     Route: 048
     Dates: start: 20151120, end: 20151203
  5. ZYPREXA [Suspect]
     Active Substance: OLANZAPINE
     Dosage: 20 MG, UNKNOWN
     Route: 048
     Dates: start: 20151016, end: 20151109
  6. RISPERDAL [Suspect]
     Active Substance: RISPERIDONE
     Dosage: 1 MG, UNKNOWN
     Route: 048
     Dates: start: 20151206, end: 20151217
  7. ATOSIL                             /00033002/ [Suspect]
     Active Substance: PROMETHAZINE HYDROCHLORIDE
     Indication: SCHIZOPHRENIA
     Dosage: 100 MG, UNKNOWN
     Route: 048
     Dates: start: 20151011, end: 20151116
  8. TAVOR (LORAZEPAM) [Concomitant]
     Active Substance: LORAZEPAM
     Indication: PRODUCT USED FOR UNKNOWN INDICATION
     Dosage: 3 MG, UNKNOWN
     Route: 048
     Dates: start: 20151008, end: 20151013
  9. TAVOR (LORAZEPAM) [Concomitant]
     Active Substance: LORAZEPAM
     Dosage: 3 MG, UNKNOWN
     Route: 048
     Dates: start: 20151102, end: 20151105
  10. RISPERDAL [Suspect]
     Active Substance: RISPERIDONE
     Indication: SCHIZOPHRENIA
     Dosage: 4 MG, UNKNOWN
     Route: 048
     Dates: start: 20151019, end: 20151027
  11. RISPERDAL [Suspect]
     Active Substance: RISPERIDONE
     Dosage: 6 MG, UNKNOWN
     Route: 048
     Dates: start: 20151028, end: 20151119
  12. ATOSIL                             /00033002/ [Suspect]
     Active Substance: PROMETHAZINE HYDROCHLORIDE
     Dosage: 50 MG, UNKNOWN
     Route: 048
     Dates: start: 20151118, end: 20151217
  13. TAVOR (LORAZEPAM) [Concomitant]
     Active Substance: LORAZEPAM
     Dosage: 4 MG, UNKNOWN
     Route: 048
     Dates: start: 20151014, end: 20151101
  14. TAVOR (LORAZEPAM) [Concomitant]
     Active Substance: LORAZEPAM
     Dosage: 2 MG, UNKNOWN
     Route: 048
     Dates: start: 20151106, end: 20151109
  15. TAVOR (LORAZEPAM) [Concomitant]
     Active Substance: LORAZEPAM
     Dosage: 1 MG, UNKNOWN
     Route: 048
     Dates: start: 20151201, end: 20151213

REACTIONS (2)
  - Parkinsonism [Recovered/Resolved]
  - Disturbance in attention [Recovered/Resolved]

NARRATIVE: CASE EVENT DATE: 20151027
